FAERS Safety Report 10083806 (Version 3)
Quarter: 2014Q2

REPORT INFORMATION
  Report Type: Spontaneous
  Country: JP (occurrence: JP)
  Receive Date: 20140417
  Receipt Date: 20140611
  Transmission Date: 20141212
  Serious: Yes (Other)
  Sender: FDA-Public Use
  Company Number: PHHY2014JP046314

PATIENT
  Age: 66 Year
  Sex: Male
  Weight: 61 kg

DRUGS (12)
  1. TASIGNA [Suspect]
     Indication: CHRONIC MYELOID LEUKAEMIA
     Dosage: 600 MG, DAILY
     Route: 048
     Dates: start: 20120423, end: 20130719
  2. REZALTAS [Suspect]
     Indication: HYPERTENSION
     Dosage: 1 DF
     Route: 048
     Dates: start: 20110128, end: 20130628
  3. SPRYCEL//DASATINIB [Concomitant]
     Dosage: 100 DF
     Route: 048
     Dates: start: 201308, end: 20130816
  4. SPRYCEL//DASATINIB [Concomitant]
     Dosage: 100 DF
     Dates: start: 20131004
  5. THYRADIN S [Concomitant]
     Indication: HYPOTHYROIDISM
     Dosage: 75 MG
     Route: 048
     Dates: start: 20071205
  6. OLMETEC [Concomitant]
     Indication: HYPERTENSION
     Dosage: 20 MG
     Route: 048
     Dates: start: 20130628
  7. OLMETEC [Concomitant]
     Dosage: 20 MG, QOD
  8. LUNESTA [Concomitant]
     Indication: INSOMNIA
     Route: 048
     Dates: start: 20130628
  9. PARIET [Concomitant]
     Indication: GASTROOESOPHAGEAL REFLUX DISEASE
     Dosage: 10 MG
     Route: 048
     Dates: start: 20121107
  10. MAGMITT [Concomitant]
     Indication: CONSTIPATION
     Dosage: 990 MG
     Route: 048
     Dates: start: 20120711
  11. BETANIS [Concomitant]
     Indication: HYPERTONIC BLADDER
     Dosage: 50 MG
     Route: 048
     Dates: start: 20121211
  12. URIEF [Concomitant]
     Indication: HYPERTONIC BLADDER
     Dosage: 8 MG
     Route: 048
     Dates: start: 20130125

REACTIONS (4)
  - Visual field defect [Unknown]
  - Altered state of consciousness [Recovering/Resolving]
  - Fall [Recovering/Resolving]
  - Dizziness [Unknown]
